FAERS Safety Report 15389011 (Version 3)
Quarter: 2018Q4

REPORT INFORMATION
  Report Type: Spontaneous
  Country: FR (occurrence: FR)
  Receive Date: 20180917
  Receipt Date: 20181017
  Transmission Date: 20190204
  Serious: Yes (Death, Hospitalization, Other)
  Sender: FDA-Public Use
  Company Number: FR-BIOGEN-2018BI00632965

PATIENT
  Age: 3 Year
  Sex: Female

DRUGS (1)
  1. SPINRAZA [Suspect]
     Active Substance: NUSINERSEN
     Indication: SPINAL MUSCULAR ATROPHY
     Dosage: SINCE 14 MONTHS
     Route: 037
     Dates: start: 20170615

REACTIONS (10)
  - Cardiomyopathy [Fatal]
  - Cardiogenic shock [Unknown]
  - General physical health deterioration [Fatal]
  - Cardiac failure [Fatal]
  - Pyrexia [Fatal]
  - Cardiopulmonary failure [Not Recovered/Not Resolved]
  - Arrhythmia [Fatal]
  - Viral myocarditis [Fatal]
  - Ventricular fibrillation [Fatal]
  - Acute respiratory distress syndrome [Unknown]

NARRATIVE: CASE EVENT DATE: 20180910
